FAERS Safety Report 5117234-3 (Version None)
Quarter: 2006Q3

REPORT INFORMATION
  Report Type: 
  Country: None (occurrence: None)
  Receive Date: 20060929
  Receipt Date: 20060911
  Transmission Date: 20061208
  Serious: Yes (Life-Threatening, Hospitalization, Disabling, Other)
  Sender: FDA-Public Use
  Company Number: PHBS2006JP13850

PATIENT
  Age: 77 Year
  Sex: Female

DRUGS (6)
  1. ZOMETA [Suspect]
     Indication: METASTASES TO BONE
     Dosage: 4 MG
     Route: 042
     Dates: start: 20060908
  2. HYSRON [Concomitant]
     Dosage: 800 MG/D
     Route: 048
  3. BIO THREE [Concomitant]
     Dosage: 3 DF/D
     Route: 048
  4. ACINON [Concomitant]
     Dosage: 300 MG/D
     Route: 048
  5. VOLTAREN [Concomitant]
     Dosage: 50 MG/D
     Route: 054
  6. LOXONIN [Concomitant]
     Dosage: 180 MG/D
     Route: 048

REACTIONS (9)
  - BLOOD ALBUMIN DECREASED [None]
  - BLOOD CALCIUM DECREASED [None]
  - BLOOD CREATININE INCREASED [None]
  - BLOOD UREA INCREASED [None]
  - C-REACTIVE PROTEIN INCREASED [None]
  - DISSEMINATED INTRAVASCULAR COAGULATION [None]
  - PLATELET COUNT DECREASED [None]
  - RENAL FAILURE ACUTE [None]
  - WHITE BLOOD CELL COUNT INCREASED [None]
